FAERS Safety Report 4762923-3 (Version None)
Quarter: 2005Q3

REPORT INFORMATION
  Report Type: 
  Country: None (occurrence: None)
  Receive Date: 20050907
  Receipt Date: 20050729
  Transmission Date: 20060218
  Serious: Yes (Other)
  Sender: FDA-Public Use
  Company Number: PHFR2005GB02625

PATIENT
  Age: 65 Year
  Sex: Female
  Weight: 88 kg

DRUGS (2)
  1. PAMIDRONATE DISODIUM [Suspect]
     Indication: METASTASES TO BONE
     Dosage: 6MG/DAY
     Route: 042
     Dates: start: 20020101, end: 20020801
  2. ZOMETA [Suspect]
     Indication: METASTASES TO BONE
     Dosage: 6MG/DAY
     Route: 042
     Dates: start: 20030801, end: 20031001

REACTIONS (6)
  - ASEPTIC NECROSIS BONE [None]
  - BLOOD CALCIUM DECREASED [None]
  - OSTEONECROSIS [None]
  - PAIN [None]
  - SWELLING [None]
  - TOOTH ABSCESS [None]
